FAERS Safety Report 4299360-4 (Version None)
Quarter: 2004Q1

REPORT INFORMATION
  Report Type: 
  Country: None (occurrence: None)
  Receive Date: 20040217
  Receipt Date: 20040203
  Transmission Date: 20041129
  Serious: Yes (Other)
  Sender: FDA-Public Use
  Company Number: 2004UW02209

PATIENT
  Sex: Male

DRUGS (1)
  1. SEROQUEL [Suspect]

REACTIONS (1)
  - NEUTROPENIA [None]
